FAERS Safety Report 11645898 (Version 2)
Quarter: 2015Q4

REPORT INFORMATION
  Report Type: Spontaneous
  Country: US (occurrence: US)
  Receive Date: 20151020
  Receipt Date: 20151026
  Transmission Date: 20160304
  Serious: No
  Sender: FDA-Public Use
  Company Number: US-PFIZER INC-2015347390

PATIENT
  Sex: Female

DRUGS (2)
  1. LYRICA [Suspect]
     Active Substance: PREGABALIN
     Dosage: 150 MG, TWO 75MG
  2. LYRICA [Suspect]
     Active Substance: PREGABALIN
     Indication: DIABETIC NEUROPATHY
     Dosage: TWO 40 MG, DAILY

REACTIONS (9)
  - Intentional product use issue [Unknown]
  - Dry mouth [Unknown]
  - Glossodynia [Unknown]
  - Expired product administered [Unknown]
  - Abdominal discomfort [Unknown]
  - Dizziness [Unknown]
  - Dysarthria [Unknown]
  - Incorrect dose administered [Unknown]
  - Balance disorder [Unknown]
